FAERS Safety Report 9224521 (Version 1)
Quarter: 2013Q2

REPORT INFORMATION
  Report Type: Spontaneous
  Country: US (occurrence: US)
  Receive Date: 20130411
  Receipt Date: 20130411
  Transmission Date: 20140414
  Serious: Yes (Life-Threatening, Hospitalization)
  Sender: FDA-Public Use
  Company Number: US-BAYER-2013-045527

PATIENT
  Age: 59 Year
  Sex: Male

DRUGS (1)
  1. GADOPENTETATE DIMEGLUMINE [Suspect]
     Indication: NUCLEAR MAGNETIC RESONANCE IMAGING
     Dosage: APPROXIMATELY 10 ML
     Route: 037

REACTIONS (13)
  - Meningitis chemical [Recovered/Resolved]
  - Neurotoxicity [None]
  - Incorrect route of drug administration [None]
  - Agitation [Recovered/Resolved]
  - Labile blood pressure [Recovered/Resolved]
  - Mental status changes [Recovered/Resolved]
  - Aphasia [Recovered/Resolved]
  - Dysarthria [Recovered/Resolved]
  - Depressed level of consciousness [Recovered/Resolved]
  - VIIth nerve paralysis [Recovered/Resolved]
  - Diabetes insipidus [Recovered/Resolved]
  - Brain oedema [Recovered/Resolved]
  - Status epilepticus [Recovered/Resolved]
